FAERS Safety Report 9031101 (Version 1)
Quarter: 2013Q1

REPORT INFORMATION
  Report Type: Spontaneous
  Country: US (occurrence: US)
  Receive Date: 20130123
  Receipt Date: 20130123
  Transmission Date: 20140127
  Serious: Yes (Other)
  Sender: FDA-Public Use
  Company Number: US-PFIZER INC-2013026683

PATIENT
  Age: 87 Year
  Sex: Female

DRUGS (10)
  1. REVATIO [Suspect]
     Indication: PULMONARY HYPERTENSION
     Dosage: 20 MG, 3X/DAY
     Route: 048
     Dates: start: 201110
  2. PLAVIX [Concomitant]
     Dosage: UNK
  3. PROPRANOLOL [Concomitant]
     Dosage: UNK
  4. FUROSEMIDE [Concomitant]
     Dosage: UNK
  5. ALBUTEROL [Concomitant]
     Dosage: UNK
  6. LEVOTHYROXINE [Concomitant]
     Indication: THYROID DISORDER
     Dosage: UNK
  7. POTASSIUM [Concomitant]
     Dosage: 10 MG, 2X/DAY
  8. TRAMADOL [Concomitant]
     Indication: PAIN
     Dosage: UNK, AS NEEDED
  9. FERROUS SULPHATE [Concomitant]
     Dosage: 325 MG, 2X/DAY
  10. VITAMIN D [Concomitant]
     Dosage: 1000 IU, UNK

REACTIONS (1)
  - Squamous cell carcinoma [Not Recovered/Not Resolved]
